FAERS Safety Report 4340842-4 (Version None)
Quarter: 2004Q2

REPORT INFORMATION
  Report Type: 
  Country: None (occurrence: None)
  Receive Date: 20040419
  Receipt Date: 20030702
  Transmission Date: 20050107
  Serious: Yes (Hospitalization, Other)
  Sender: FDA-Public Use
  Company Number: PHBS2003JP07100

PATIENT
  Age: 78 Year
  Sex: Female
  Weight: 41 kg

DRUGS (17)
  1. SLOW-K [Concomitant]
     Dosage: 1.2 G, UNK
     Route: 048
     Dates: start: 20030811
  2. URSO [Concomitant]
     Dosage: 300 MG, UNK
     Route: 048
     Dates: start: 20030609
  3. SIGMART [Concomitant]
     Dosage: 15 MG, UNK
     Route: 048
     Dates: start: 20030609
  4. GLYCYRON [Concomitant]
     Dosage: 6 DF, UNK
     Route: 048
     Dates: start: 20030609
  5. SELBEX [Concomitant]
     Dosage: 1.5 G, UNK
     Route: 048
     Dates: start: 20030609
  6. NITOROL [Concomitant]
     Dosage: 40 MG, UNK
     Route: 048
     Dates: start: 20030609
  7. PERSANTIN [Concomitant]
     Dosage: 200 MG, UNK
     Route: 048
     Dates: start: 20030609
  8. GASTER [Concomitant]
     Dosage: 20 MG, UNK
     Route: 048
     Dates: start: 20030609
  9. TANATRIL [Concomitant]
     Dosage: 5 MG, UNK
     Route: 048
     Dates: start: 20030609
  10. AMLODIPINE [Concomitant]
     Dosage: 5 MG, UNK
     Route: 048
     Dates: start: 20030609
  11. GLEEVEC [Suspect]
     Indication: CHRONIC MYELOID LEUKAEMIA
     Dosage: UNK, NO TREATMENT
     Dates: start: 20030617, end: 20030724
  12. GLEEVEC [Suspect]
     Dosage: 200 MG, QD
     Route: 048
     Dates: start: 20030725, end: 20030818
  13. GLEEVEC [Suspect]
     Dosage: UNK, NO TREATMENT
     Dates: start: 20030819, end: 20030911
  14. GLEEVEC [Suspect]
     Dosage: 200 MG, QD
     Route: 048
     Dates: start: 20030912, end: 20031008
  15. GLEEVEC [Suspect]
     Dosage: UNK, NO TREATMENT
     Dates: start: 20031009, end: 20031104
  16. GLEEVEC [Suspect]
     Dosage: 200 MG, QD
     Route: 048
     Dates: start: 20031105, end: 20031209
  17. GLEEVEC [Suspect]
     Dosage: 400 MG, QD
     Route: 048
     Dates: start: 20030609, end: 20030616

REACTIONS (16)
  - ALANINE AMINOTRANSFERASE INCREASED [None]
  - ASPARTATE AMINOTRANSFERASE INCREASED [None]
  - BLOOD ALBUMIN DECREASED [None]
  - BLOOD LACTATE DEHYDROGENASE INCREASED [None]
  - GAMMA-GLUTAMYLTRANSFERASE INCREASED [None]
  - GENERALISED OEDEMA [None]
  - HAEMATOCRIT DECREASED [None]
  - HAEMOGLOBIN DECREASED [None]
  - HEPATIC ENZYME INCREASED [None]
  - MALAISE [None]
  - MALIGNANT NEOPLASM PROGRESSION [None]
  - PLATELET COUNT DECREASED [None]
  - PLEURAL EFFUSION [None]
  - RED BLOOD CELL COUNT DECREASED [None]
  - WEIGHT INCREASED [None]
  - WHITE BLOOD CELL COUNT DECREASED [None]
